FAERS Safety Report 6840185-0 (Version None)
Quarter: 2010Q3

REPORT INFORMATION
  Report Type: 
  Country: None (occurrence: None)
  Receive Date: 20100713
  Receipt Date: 20100713
  Transmission Date: 20110219
  Serious: Yes (Other)
  Sender: FDA-Public Use
  Company Number: None

PATIENT
  Age: 53 Year
  Sex: Female
  Weight: 97.0698 kg

DRUGS (1)
  1. LEVAQUIN [Suspect]
     Indication: PNEUMONIA
     Dosage: 750 MG ONCE DAILY FOR 7 D PO
     Route: 048
     Dates: start: 20100708, end: 20100708

REACTIONS (7)
  - LIP SWELLING [None]
  - NO THERAPEUTIC RESPONSE [None]
  - OEDEMA MOUTH [None]
  - PRURITUS [None]
  - STEVENS-JOHNSON SYNDROME [None]
  - SWELLING FACE [None]
  - URTICARIA [None]
